FAERS Safety Report 5717734-9 (Version None)
Quarter: 2008Q2

REPORT INFORMATION
  Report Type: 
  Country: None (occurrence: None)
  Receive Date: 20080425
  Receipt Date: 20080418
  Transmission Date: 20081010
  Serious: Yes (Hospitalization)
  Sender: FDA-Public Use
  Company Number: FR-AVENTIS-200811478FR

PATIENT
  Age: 76 Year
  Sex: Male

DRUGS (10)
  1. TRIATEC                            /00885601/ [Suspect]
     Indication: CARDIAC FAILURE
     Route: 048
  2. GLIMEPIRIDE [Suspect]
     Indication: DIABETES MELLITUS
     Route: 048
  3. KARDEGIC                           /00002703/ [Suspect]
     Indication: THROMBOSIS PROPHYLAXIS
     Route: 048
  4. INIPOMP                            /01263201/ [Suspect]
     Indication: ABDOMINAL PAIN UPPER
     Route: 048
  5. CARDENSIEL [Suspect]
     Indication: CARDIAC FAILURE
     Route: 048
  6. ALDACTONE [Suspect]
     Indication: CARDIAC FAILURE
     Route: 048
  7. ZOCOR [Suspect]
     Indication: HYPERCHOLESTEROLAEMIA
     Route: 048
  8. BURINEX [Suspect]
     Indication: CARDIAC FAILURE
     Route: 048
     Dates: end: 20071108
  9. BURINEX [Suspect]
     Route: 048
     Dates: start: 20071109, end: 20071113
  10. BURINEX [Suspect]
     Route: 048

REACTIONS (3)
  - PURPURA [None]
  - RASH [None]
  - TOXIC SKIN ERUPTION [None]
